FAERS Safety Report 5356811-1 (Version None)
Quarter: 2007Q2

REPORT INFORMATION
  Report Type: 
  Country: None (occurrence: None)
  Receive Date: 20070614
  Receipt Date: 20070404
  Transmission Date: 20071010
  Serious: No
  Sender: FDA-Public Use
  Company Number: US-ASTRAZENECA-2007UW06701

PATIENT
  Age: 72 Year
  Sex: Male

DRUGS (7)
  1. ATACAND [Suspect]
     Route: 048
     Dates: start: 20061001
  2. HYDROCHLOROTHIAZIDE [Concomitant]
  3. GLIPIZIDE [Concomitant]
  4. ANDROGEL [Concomitant]
  5. TRICOR [Concomitant]
  6. VYTORIN [Concomitant]
  7. SINGULAIR [Concomitant]

REACTIONS (1)
  - MEDICATION RESIDUE [None]
